FAERS Safety Report 5691808-3 (Version None)
Quarter: 2008Q1

REPORT INFORMATION
  Report Type: 
  Country: None (occurrence: None)
  Receive Date: 20080331
  Receipt Date: 20080320
  Transmission Date: 20080703
  Serious: No
  Sender: FDA-Public Use
  Company Number: 220036J08USA

PATIENT
  Age: 9 Year
  Sex: Female
  Weight: 38.5557 kg

DRUGS (6)
  1. SAIZEN [Suspect]
     Indication: GROWTH HORMONE DEFICIENCY
     Dosage: 1.93 MG
     Dates: start: 20080201, end: 20080306
  2. SAIZEN [Suspect]
     Indication: GROWTH HORMONE DEFICIENCY
     Dosage: 1.93 MG
     Dates: start: 20080310
  3. DDAVP [Concomitant]
  4. LEVOXYL [Concomitant]
  5. CORTEST (ALL OTHER THERAPEUTIC PRODUCTS) [Concomitant]
  6. KEPPRA [Concomitant]

REACTIONS (8)
  - ABDOMINAL PAIN [None]
  - DEHYDRATION [None]
  - EYE SWELLING [None]
  - HEADACHE [None]
  - INCONTINENCE [None]
  - NAUSEA [None]
  - POLLAKIURIA [None]
  - SWELLING FACE [None]
